FAERS Safety Report 20874674 (Version 1)
Quarter: 2022Q2

REPORT INFORMATION
  Report Type: Spontaneous
  Country: US (occurrence: US)
  Receive Date: 20220525
  Receipt Date: 20220525
  Transmission Date: 20220721
  Serious: Yes (Hospitalization, Other)
  Sender: FDA-Public Use
  Company Number: US-BAXTER-2022BAX010379

PATIENT
  Age: 20 Year
  Sex: Male
  Weight: 110.7 kg

DRUGS (12)
  1. CYTOXAN LYOPHILIZED [Suspect]
     Active Substance: CYCLOPHOSPHAMIDE
     Indication: B precursor type acute leukaemia
     Dosage: 6900 MG
     Route: 065
     Dates: end: 20220406
  2. DOXIL [Suspect]
     Active Substance: DOXORUBICIN HYDROCHLORIDE
     Indication: B precursor type acute leukaemia
     Dosage: 174 MG
     Route: 065
     Dates: end: 20220316
  3. CYTARABINE [Suspect]
     Active Substance: CYTARABINE
     Indication: B precursor type acute leukaemia
     Dosage: 4150 MG
     Route: 065
     Dates: end: 20220417
  4. INOTUZUMAB OZOGAMICIN [Suspect]
     Active Substance: INOTUZUMAB OZOGAMICIN
     Indication: B precursor type acute leukaemia
     Dosage: 6.6 MG
     Route: 065
     Dates: end: 20210910
  5. METHOTREXATE SODIUM [Suspect]
     Active Substance: METHOTREXATE SODIUM
     Indication: B precursor type acute leukaemia
     Dosage: 2080 MG
     Route: 065
     Dates: end: 20220414
  6. VINCRISTINE SULFATE [Suspect]
     Active Substance: VINCRISTINE SULFATE
     Indication: B precursor type acute leukaemia
     Dosage: 32 MG
     Route: 065
     Dates: end: 20220316
  7. RITUXIMAB [Suspect]
     Active Substance: RITUXIMAB
     Indication: B precursor type acute leukaemia
     Dosage: 7200 MG
     Route: 065
     Dates: end: 20220309
  8. DAUNORUBICIN [Suspect]
     Active Substance: DAUNORUBICIN
     Indication: B precursor type acute leukaemia
     Dosage: 220 MG
     Route: 065
     Dates: end: 20210708
  9. DEXAMETHASONE [Suspect]
     Active Substance: DEXAMETHASONE
     Indication: B precursor type acute leukaemia
     Dosage: 658 MG
     Route: 065
     Dates: end: 20220320
  10. MERCAPTOPURINE [Suspect]
     Active Substance: MERCAPTOPURINE
     Indication: B precursor type acute leukaemia
     Dosage: 3900 MG
     Route: 065
     Dates: end: 20211122
  11. PEGASPARGASE [Suspect]
     Active Substance: PEGASPARGASE
     Indication: B precursor type acute leukaemia
     Dosage: 22500 U
     Route: 065
     Dates: end: 20220302
  12. THIOGUANINE [Suspect]
     Active Substance: THIOGUANINE
     Indication: B precursor type acute leukaemia
     Dosage: 1660 MG
     Route: 065
     Dates: end: 20220417

REACTIONS (2)
  - Febrile neutropenia [Unknown]
  - Posterior reversible encephalopathy syndrome [Recovered/Resolved]

NARRATIVE: CASE EVENT DATE: 20220418
